FAERS Safety Report 16875416 (Version 2)
Quarter: 2019Q4

REPORT INFORMATION
  Report Type: Spontaneous
  Country: BR (occurrence: BR)
  Receive Date: 20191002
  Receipt Date: 20191011
  Transmission Date: 20200122
  Serious: Yes (Hospitalization)
  Sender: FDA-Public Use
  Company Number: BR-ABBVIE-19P-020-2947098-00

PATIENT
  Sex: Male
  Weight: 20 kg

DRUGS (7)
  1. KLARICID IV [Suspect]
     Active Substance: CLARITHROMYCIN
     Indication: PRODUCT USED FOR UNKNOWN INDICATION
     Route: 042
  2. SALINE [Concomitant]
     Active Substance: SODIUM CHLORIDE
     Indication: AIRWAY SECRETION CLEARANCE THERAPY
     Dosage: 5ML OF SALINE SOLUTION + 5 DROPS OF BEROTEC;
     Route: 055
  3. KLARICID [Suspect]
     Active Substance: CLARITHROMYCIN
     Route: 048
  4. PREDNISONE. [Concomitant]
     Active Substance: PREDNISONE
     Indication: FATIGUE
     Route: 048
     Dates: start: 20190916
  5. KLARICID [Suspect]
     Active Substance: CLARITHROMYCIN
     Indication: PNEUMONIA
     Route: 048
     Dates: start: 20190916, end: 2019
  6. BEROTEC [Concomitant]
     Active Substance: FENOTEROL HYDROBROMIDE
     Indication: AIRWAY SECRETION CLEARANCE THERAPY
     Dosage: 5ML OF SALINE SOLUTION + 5 DROPS OF BEROTEC;
     Route: 055
  7. KLARICID [Suspect]
     Active Substance: CLARITHROMYCIN
     Route: 048
     Dates: start: 20190925, end: 20190926

REACTIONS (2)
  - Burning sensation [Unknown]
  - Pneumonia [Recovered/Resolved]

NARRATIVE: CASE EVENT DATE: 2019
